FAERS Safety Report 8182742-8 (Version None)
Quarter: 2012Q1

REPORT INFORMATION
  Report Type: 
  Country: None (occurrence: None)
  Receive Date: 20120301
  Receipt Date: 20120301
  Transmission Date: 20120608
  Serious: No
  Sender: FDA-Public Use
  Company Number: None

PATIENT
  Age: 59 Year
  Sex: Female
  Weight: 58.0604 kg

DRUGS (1)
  1. ACTONEL [Suspect]
     Indication: BONE DENSITY ABNORMAL
     Dosage: 150MG 1X PER MOUTH
     Route: 048

REACTIONS (4)
  - OCULAR HYPERAEMIA [None]
  - PHOTOPHOBIA [None]
  - EYE PAIN [None]
  - LACRIMATION INCREASED [None]
